FAERS Safety Report 18169082 (Version 1)
Quarter: 2020Q3

REPORT INFORMATION
  Report Type: Spontaneous
  Country: US (occurrence: US)
  Receive Date: 20200818
  Receipt Date: 20200818
  Transmission Date: 20201103
  Serious: Yes (Death, Hospitalization)
  Sender: FDA-Public Use
  Company Number: None

PATIENT
  Age: 38 Year
  Sex: Male

DRUGS (1)
  1. BOSENTAN 125MG TABLETS 60/BO: (TEVA) [Suspect]
     Active Substance: BOSENTAN
     Indication: PULMONARY ARTERIAL HYPERTENSION
     Route: 048
     Dates: start: 20190621, end: 20200621

REACTIONS (6)
  - Respiratory disorder [None]
  - Multiple organ dysfunction syndrome [None]
  - Haemoptysis [None]
  - Cardiogenic shock [None]
  - Cardiac failure [None]
  - Thrombocytopenia [None]

NARRATIVE: CASE EVENT DATE: 20200721
